FAERS Safety Report 8030833-4 (Version None)
Quarter: 2012Q1

REPORT INFORMATION
  Report Type: 
  Country: None (occurrence: None)
  Receive Date: 20120105
  Receipt Date: 20111223
  Transmission Date: 20120608
  Serious: Yes (Hospitalization)
  Sender: FDA-Public Use
  Company Number: 1000026332

PATIENT
  Age: 81 Year
  Sex: Female

DRUGS (4)
  1. CITALOPRAM HYDROBROMIDE [Suspect]
     Indication: ANTIDEPRESSANT THERAPY
     Dosage: 20 MG (20 MG,1 IN 1 D),ORAL
     Route: 048
     Dates: start: 20010101
  2. GLIBOMET (METFORMIN HYDROCHLORIDE, GLIBENCLAMIDE) [Suspect]
     Indication: DIABETES MELLITUS
     Dosage: ORAL
     Route: 048
     Dates: start: 20010101
  3. ENALAPRIL MALEATE [Concomitant]
  4. VALPROATE SODIUM [Suspect]
     Indication: BIPOLAR DISORDER
     Dosage: 200 MG (200 MG,1 IN 1 D)
     Dates: start: 20100101

REACTIONS (1)
  - HEPATITIS TOXIC [None]
